FAERS Safety Report 5371587-X (Version None)
Quarter: 2007Q2

REPORT INFORMATION
  Report Type: 
  Country: None (occurrence: None)
  Receive Date: 20070625
  Receipt Date: 20070616
  Transmission Date: 20071010
  Serious: Yes (Hospitalization)
  Sender: FDA-Public Use
  Company Number: 2007SP010541

PATIENT
  Age: 49 Year
  Sex: Male
  Weight: 86.1834 kg

DRUGS (2)
  1. PEG-INTRON [Suspect]
     Indication: HEPATITIS C
     Dosage: SC
     Route: 058
     Dates: start: 20070410
  2. REBETOL [Suspect]
     Indication: HEPATITIS C
     Dosage: PO
     Route: 048
     Dates: start: 20070410

REACTIONS (16)
  - BLOOD SODIUM DECREASED [None]
  - CONVULSION [None]
  - DELUSION [None]
  - FATIGUE [None]
  - HYPERHIDROSIS [None]
  - INSOMNIA [None]
  - LOCALISED INFECTION [None]
  - MANIA [None]
  - NAUSEA [None]
  - NECK PAIN [None]
  - PARANOIA [None]
  - POLYDIPSIA [None]
  - PYREXIA [None]
  - SKIN LACERATION [None]
  - THINKING ABNORMAL [None]
  - VOMITING [None]
